FAERS Safety Report 10704514 (Version 1)
Quarter: 2014Q4

REPORT INFORMATION
  Report Type: Report from Study
  Country: US (occurrence: None)
  Receive Date: 20141224
  Receipt Date: 20141224
  Transmission Date: 20150529
  Serious: No
  Sender: FDA-Public Use
  Company Number: CABO-14004868

PATIENT
  Age: 68 Year
  Sex: Male

DRUGS (1)
  1. COMETRIQ [Suspect]
     Active Substance: CABOZANTINIB S-MALATE
     Indication: BLADDER CANCER
     Route: 048
     Dates: start: 20140920, end: 201410

REACTIONS (3)
  - Fatigue [None]
  - Hypoaesthesia [None]
  - Off label use [None]

NARRATIVE: CASE EVENT DATE: 2014
